FAERS Safety Report 4577585-8 (Version None)
Quarter: 2005Q1

REPORT INFORMATION
  Report Type: 
  Country: None (occurrence: None)
  Receive Date: 20050208
  Receipt Date: 20050129
  Transmission Date: 20050727
  Serious: Yes (Hospitalization)
  Sender: FDA-Public Use
  Company Number: 2004IM000934

PATIENT
  Age: 43 Year
  Sex: Male

DRUGS (4)
  1. ADVAFERON (A643_INTERFERON ALFACON-1) [Suspect]
     Indication: HEPATITIS C
     Dosage: 12 MU; QOD; SUBCUTANEOUS
     Route: 058
     Dates: start: 20030307, end: 20030524
  2. LISINOPRIL [Concomitant]
  3. AMLODIPINE BESYLATE [Concomitant]
  4. POLAPREZINC [Concomitant]

REACTIONS (4)
  - BLOOD PRESSURE INCREASED [None]
  - CEREBRAL HAEMORRHAGE [None]
  - MOYAMOYA DISEASE [None]
  - PALPITATIONS [None]
